FAERS Safety Report 16170300 (Version 1)
Quarter: 2019Q2

REPORT INFORMATION
  Report Type: Report from Study
  Country: US (occurrence: US)
  Receive Date: 20190408
  Receipt Date: 20190408
  Transmission Date: 20190711
  Serious: No
  Sender: FDA-Public Use
  Company Number: US-INCYTE CORPORATION-2019IN002967

PATIENT

DRUGS (1)
  1. JAKAFI [Suspect]
     Active Substance: RUXOLITINIB
     Indication: MYELOFIBROSIS
     Dosage: 10MG X 2, BID
     Route: 048
     Dates: start: 20181215

REACTIONS (3)
  - Haemoglobin abnormal [Unknown]
  - Weight increased [Unknown]
  - Increased appetite [Unknown]
